FAERS Safety Report 4354050-4 (Version None)
Quarter: 2004Q2

REPORT INFORMATION
  Report Type: 
  Country: None (occurrence: None)
  Receive Date: 20040506
  Receipt Date: 19991027
  Transmission Date: 20050107
  Serious: Yes (Death, Other)
  Sender: FDA-Public Use
  Company Number: 199922200HMRI

PATIENT
  Sex: 0

DRUGS (9)
  1. ARAVA [Suspect]
     Indication: RHEUMATOID ARTHRITIS
     Dates: start: 19990712
  2. VITAMIN D [Concomitant]
     Dosage: DOSE: UNK
  3. VICODIN [Concomitant]
     Dosage: DOSE: UNK
  4. LANSOPRAZOLE [Concomitant]
     Dosage: DOSE: UNK
  5. BENADRYL [Concomitant]
     Dosage: DOSE: UNK
  6. DOCUSATE SODIUM [Concomitant]
     Dosage: DOSE: UNK
  7. PREDNISONE [Concomitant]
  8. NAPROSYN [Concomitant]
  9. METHOTREXATE [Concomitant]

REACTIONS (5)
  - BURSITIS INFECTIVE [None]
  - LUNG NEOPLASM MALIGNANT [None]
  - NECROBIOSIS [None]
  - OSTEOMYELITIS [None]
  - PYODERMA GANGRENOSUM [None]
